FAERS Safety Report 20394787 (Version 1)
Quarter: 2022Q1

REPORT INFORMATION
  Report Type: Spontaneous
  Country: US (occurrence: US)
  Receive Date: 20220130
  Receipt Date: 20220130
  Transmission Date: 20220423
  Serious: No
  Sender: FDA-Public Use
  Company Number: US-SA-SAC20220126000341

PATIENT
  Sex: Female

DRUGS (12)
  1. DUPIXENT [Suspect]
     Active Substance: DUPILUMAB
     Indication: Psoriasis
     Dosage: 300 MG, QOW
     Route: 058
  2. ACETAZOLAMIDE [Concomitant]
     Active Substance: ACETAZOLAMIDE
  3. AVALIDE [Concomitant]
     Active Substance: HYDROCHLOROTHIAZIDE\IRBESARTAN
  4. CALCIUM [Concomitant]
     Active Substance: CALCIUM
  5. CLARINEX [Concomitant]
     Active Substance: DESLORATADINE
  6. HUMIRA [Concomitant]
     Active Substance: ADALIMUMAB
     Indication: Psoriasis
  7. OTEZLA [Concomitant]
     Active Substance: APREMILAST
  8. URSODIOL [Concomitant]
     Active Substance: URSODIOL
  9. FERROUS SULFATE [Concomitant]
     Active Substance: FERROUS SULFATE
  10. MAGNESIUM LACTATE [Concomitant]
     Active Substance: MAGNESIUM LACTATE
  11. MULTIVITAL [ASTRAGALUS SPP. EXTRACT;AVENA SATIVA EXTRACT;CRATAEGUS SPP [Concomitant]
  12. POTASSIUM CHLORIDE [Concomitant]
     Active Substance: POTASSIUM CHLORIDE

REACTIONS (1)
  - Product use in unapproved indication [Unknown]
